FAERS Safety Report 10159436 (Version 2)
Quarter: 2015Q3

REPORT INFORMATION
  Report Type: Spontaneous
  Country: FR (occurrence: FR)
  Receive Date: 20140508
  Receipt Date: 20150813
  Transmission Date: 20151125
  Serious: Yes (Life-Threatening, Hospitalization, Other)
  Sender: FDA-Public Use
  Company Number: FR-ELI_LILLY_AND_COMPANY-FR201405000550

PATIENT
  Age: 47 Year
  Sex: Male
  Weight: 87.5 kg

DRUGS (4)
  1. SUBUTEX [Interacting]
     Active Substance: BUPRENORPHINE HYDROCHLORIDE
     Indication: ALCOHOLISM
     Dosage: 1 DF, UNKNOWN
     Route: 048
     Dates: end: 20140226
  2. CYMBALTA [Suspect]
     Active Substance: DULOXETINE HYDROCHLORIDE
     Indication: PRODUCT USED FOR UNKNOWN INDICATION
     Dosage: 30 MG, QD
     Route: 048
     Dates: start: 20140226, end: 20140226
  3. REVIA [Interacting]
     Active Substance: NALTREXONE HYDROCHLORIDE
     Indication: PRODUCT USED FOR UNKNOWN INDICATION
     Dosage: 50 MG, QD
     Route: 048
     Dates: start: 20140226, end: 20140226
  4. ETHANOL [Interacting]
     Active Substance: ALCOHOL
     Indication: PRODUCT USED FOR UNKNOWN INDICATION
     Dosage: 1 DF, UNKNOWN
     Route: 065

REACTIONS (20)
  - Delusion [Unknown]
  - Nervousness [Unknown]
  - Musculoskeletal stiffness [Recovering/Resolving]
  - Vomiting [Recovered/Resolved]
  - Hypoxia [Unknown]
  - Sinus tachycardia [Recovered/Resolved]
  - Blood phosphorus decreased [Unknown]
  - Inflammation [Unknown]
  - Erythema [Recovered/Resolved]
  - Altered state of consciousness [Unknown]
  - Agitation [Recovered/Resolved]
  - Platelet count decreased [Unknown]
  - Dyspnoea [Recovered/Resolved]
  - Screaming [Unknown]
  - Hypertension [Recovered/Resolved]
  - Hyperhidrosis [Recovered/Resolved]
  - Somnolence [Recovered/Resolved]
  - Pyrexia [Unknown]
  - Skin injury [Unknown]
  - Drug interaction [Unknown]

NARRATIVE: CASE EVENT DATE: 20140226
